FAERS Safety Report 8083755-7 (Version None)
Quarter: 2012Q1

REPORT INFORMATION
  Report Type: 
  Country: None (occurrence: None)
  Receive Date: 20120127
  Receipt Date: 20110121
  Transmission Date: 20120608
  Serious: Yes (Other)
  Sender: FDA-Public Use
  Company Number: US-ABBOTT-11P-163-0700275-00

PATIENT
  Age: 30 Year
  Sex: Female

DRUGS (12)
  1. HUMIRA [Suspect]
     Indication: CROHN'S DISEASE
     Dates: start: 20100301, end: 20100801
  2. PREDNISONE TAB [Concomitant]
     Indication: CROHN'S DISEASE
  3. ZANAFLEX [Concomitant]
     Indication: MUSCLE SPASMS
     Dosage: AT HOUR OF SLEEP
  4. INDERAL [Concomitant]
     Indication: VENTRICULAR EXTRASYSTOLES
  5. OMEPERZOLE [Concomitant]
     Indication: GASTROOESOPHAGEAL REFLUX DISEASE
  6. TOPAMAX [Concomitant]
     Indication: MIGRAINE
     Dosage: 75 MG IN AM AND 100 MG BEDTIME
  7. IMITREX [Concomitant]
     Indication: MIGRAINE
  8. STRATTERA [Concomitant]
     Indication: ATTENTION DEFICIT/HYPERACTIVITY DISORDER
  9. PREDNISONE TAB [Concomitant]
  10. PREDNISONE TAB [Concomitant]
  11. ASOCOL [Concomitant]
     Indication: CROHN'S DISEASE
  12. JOLESSA [Concomitant]
     Indication: CONTRACEPTION

REACTIONS (1)
  - INFECTION [None]
